FAERS Safety Report 8338508-9 (Version None)
Quarter: 2012Q2

REPORT INFORMATION
  Report Type: 
  Country: None (occurrence: None)
  Receive Date: 20120504
  Receipt Date: 20120427
  Transmission Date: 20120825
  Serious: Yes (Hospitalization, Other)
  Sender: FDA-Public Use
  Company Number: FR-ABBOTT-12P-056-0912333-00

PATIENT
  Sex: Female

DRUGS (15)
  1. METHOTREXATE [Concomitant]
     Dosage: 15 MG/2 WEEKS
     Dates: start: 20090201
  2. ACTONEL [Concomitant]
     Indication: PRODUCT USED FOR UNKNOWN INDICATION
  3. METHOTREXATE [Concomitant]
     Indication: PRODUCT USED FOR UNKNOWN INDICATION
     Dates: start: 20040601
  4. BONIVA [Concomitant]
     Indication: PRODUCT USED FOR UNKNOWN INDICATION
     Dosage: IVD
     Dates: end: 20110101
  5. PREDNISONE TAB [Concomitant]
     Dates: start: 20051101
  6. FOSAMAX [Concomitant]
     Indication: PRODUCT USED FOR UNKNOWN INDICATION
     Dates: start: 20011101
  7. METHOTREXATE [Concomitant]
     Dosage: 6 MG
     Dates: start: 20051101
  8. FOLIC ACID [Concomitant]
     Indication: PRODUCT USED FOR UNKNOWN INDICATION
     Dosage: 2TBLS/WEEK
  9. HUMIRA [Suspect]
     Dates: start: 20090101, end: 20111001
  10. PROTELOS [Concomitant]
     Indication: PRODUCT USED FOR UNKNOWN INDICATION
     Dates: start: 20090701
  11. HUMIRA [Suspect]
     Indication: RHEUMATOID ARTHRITIS
     Route: 058
     Dates: start: 20051101, end: 20051101
  12. METHOTREXATE [Concomitant]
     Indication: RHEUMATOID ARTHRITIS
     Dates: end: 20080701
  13. VITAMIN D [Concomitant]
     Indication: PRODUCT USED FOR UNKNOWN INDICATION
     Dosage: 4 DF/YEAR
  14. PREDNISONE TAB [Concomitant]
     Indication: RHEUMATOID ARTHRITIS
     Dosage: 5 MG/DAY
  15. ACTONEL [Concomitant]
     Dosage: 75

REACTIONS (15)
  - COLONIC POLYP [None]
  - ANGINA PECTORIS [None]
  - DYSPNOEA [None]
  - LYMPHOEDEMA [None]
  - RASH [None]
  - COLITIS [None]
  - ARTHROPATHY [None]
  - HYPERTENSION [None]
  - ATRIAL FIBRILLATION [None]
  - OEDEMA PERIPHERAL [None]
  - PHLEBITIS [None]
  - BASAL CELL CARCINOMA [None]
  - RECTOCELE [None]
  - ISCHAEMIC CARDIOMYOPATHY [None]
  - CARDIAC FAILURE [None]
